FAERS Safety Report 6900172-0 (Version None)
Quarter: 2010Q3

REPORT INFORMATION
  Report Type: 
  Country: None (occurrence: None)
  Receive Date: 20100803
  Receipt Date: 20100721
  Transmission Date: 20110219
  Serious: Yes (Other)
  Sender: FDA-Public Use
  Company Number: GB-ELI_LILLY_AND_COMPANY-GB201006001242

PATIENT
  Sex: Female

DRUGS (2)
  1. CYMBALTA [Suspect]
     Indication: DEPRESSION
     Dosage: 30 MG, DAILY (1/D)
     Route: 065
  2. NITROFURANTOIN [Concomitant]
     Indication: CYSTITIS
     Dosage: 50 MG, UNK

REACTIONS (1)
  - DRUG EXPOSURE DURING PREGNANCY [None]
